FAERS Safety Report 8717737 (Version 3)
Quarter: 2012Q4

REPORT INFORMATION
  Report Type: Report from Study
  Country: DE (occurrence: DE)
  Receive Date: 20120810
  Receipt Date: 20120917
  Transmission Date: 20130627
  Serious: Yes (Life-Threatening, Hospitalization)
  Sender: FDA-Public Use
  Company Number: DE-ROCHE-1086185

PATIENT
  Age: 39 Year
  Sex: Female
  Weight: 77 kg

DRUGS (4)
  1. MYOCET [Suspect]
     Indication: BREAST CANCER
     Dosage: Last dose prior to SAE: 02/Jul/2012
     Route: 042
     Dates: start: 20120507, end: 20120709
  2. PACLITAXEL [Suspect]
     Indication: BREAST CANCER
     Dosage: Last dose prior to SAE: 02/Jul/2012
     Route: 042
     Dates: start: 20120507, end: 20120709
  3. HERCEPTIN [Suspect]
     Indication: BREAST CANCER
     Dosage: Last dose prior to SAE: 18/Jun/2012
     Route: 065
     Dates: start: 20120507, end: 20120709
  4. LAPATINIB [Suspect]
     Indication: BREAST CANCER
     Dosage: Last dose prior to SAE: 14/Jun/2012
     Route: 042
     Dates: start: 20120507, end: 20120614

REACTIONS (5)
  - Pneumonia cytomegaloviral [Recovered/Resolved with Sequelae]
  - White blood cell count decreased [None]
  - Bronchitis [None]
  - Respiratory failure [None]
  - Multi-organ disorder [None]
